FAERS Safety Report 10679694 (Version 5)
Quarter: 2015Q1

REPORT INFORMATION
  Report Type: Report from Study
  Country: US (occurrence: US)
  Receive Date: 20141229
  Receipt Date: 20150129
  Transmission Date: 20150720
  Serious: Yes (Death, Hospitalization, Other)
  Sender: FDA-Public Use
  Company Number: US-BAYER-2014-188892

PATIENT
  Age: 81 Year
  Sex: Male

DRUGS (22)
  1. HEPARIN SODIUM. [Concomitant]
     Active Substance: HEPARIN SODIUM
  2. UREA. [Concomitant]
     Active Substance: UREA
  3. AMLODIPINE [Concomitant]
     Active Substance: AMLODIPINE BESYLATE
  4. LISINOPRIL. [Concomitant]
     Active Substance: LISINOPRIL
  5. SENNA [Concomitant]
     Active Substance: SENNA LEAF\SENNOSIDES\SENNOSIDES A AND B
  6. DEXAMETHASONE. [Concomitant]
     Active Substance: DEXAMETHASONE
  7. CLONIDINE. [Concomitant]
     Active Substance: CLONIDINE
  8. EVEROLIMUS [Suspect]
     Active Substance: EVEROLIMUS
     Indication: GLIOBLASTOMA MULTIFORME
     Dosage: 5 MG, QD
     Route: 048
     Dates: start: 20141125, end: 20141216
  9. VITAMIN A [Concomitant]
     Active Substance: VITAMIN A
  10. ATORVASTATIN [Concomitant]
     Active Substance: ATORVASTATIN
  11. TRAZODONE [Concomitant]
     Active Substance: TRAZODONE HYDROCHLORIDE
  12. SCOPOLAMINE [Concomitant]
     Active Substance: SCOPOLAMINE
  13. ASCORBIC ACID. [Concomitant]
     Active Substance: ASCORBIC ACID
  14. MULTIVITAMINS [Concomitant]
     Active Substance: VITAMINS
  15. MELATONIN [Concomitant]
     Active Substance: MELATONIN
  16. ACETAMINOPHEN. [Concomitant]
     Active Substance: ACETAMINOPHEN
  17. MIDODRINE [Concomitant]
     Active Substance: MIDODRINE
  18. SORAFENIB (RAF KINASE INHIBITOR) [Suspect]
     Active Substance: SORAFENIB
     Indication: GLIOBLASTOMA MULTIFORME
     Dosage: 400 MG, BID (7 DAYS ON AND 7 DAYS OFF)
     Route: 048
     Dates: start: 20141125, end: 20141215
  19. OMEPRAZOLE. [Concomitant]
     Active Substance: OMEPRAZOLE
  20. LEVETIRACETAM. [Concomitant]
     Active Substance: LEVETIRACETAM
  21. FERROUS SULFATE [Concomitant]
     Active Substance: FERROUS SULFATE\FERROUS SULFATE, DRIED
  22. BUTALBITAL [Concomitant]
     Active Substance: BUTALBITAL

REACTIONS (10)
  - Infection [Fatal]
  - Neoplasm progression [None]
  - Cerebrospinal fluid leakage [None]
  - Delirium [None]
  - Pneumonia [None]
  - Haemorrhage [Fatal]
  - Pulmonary oedema [None]
  - Skin abrasion [None]
  - Retroperitoneal haemorrhage [None]
  - Wound dehiscence [None]

NARRATIVE: CASE EVENT DATE: 201412
